FAERS Safety Report 5766828-0 (Version None)
Quarter: 2008Q2

REPORT INFORMATION
  Report Type: 
  Country: None (occurrence: None)
  Receive Date: 20080610
  Receipt Date: 20080610
  Transmission Date: 20081010
  Serious: Yes (Disabling, Other)
  Sender: FDA-Public Use
  Company Number: None

PATIENT
  Age: 40 Year
  Sex: Male
  Weight: 72.5755 kg

DRUGS (1)
  1. EFFEXOR XR [Suspect]
     Indication: DEPRESSION
     Dosage: 150MG 1 TIME A DAY PO
     Route: 048
     Dates: start: 20010615, end: 20050206

REACTIONS (5)
  - CONVULSION [None]
  - DEATH OF RELATIVE [None]
  - DEPRESSION [None]
  - MALAISE [None]
  - NERVOUS SYSTEM DISORDER [None]
